FAERS Safety Report 26119273 (Version 1)
Quarter: 2025Q4

REPORT INFORMATION
  Report Type: Spontaneous
  Country: US (occurrence: US)
  Receive Date: 20251204
  Receipt Date: 20251204
  Transmission Date: 20260119
  Serious: Yes (Hospitalization, Other)
  Sender: BAXTER
  Company Number: US-MLMSERVICE-20251117-PI715500-00029-2

PATIENT
  Age: 63 Year
  Sex: Female

DRUGS (1)
  1. ACETAMINOPHEN [Suspect]
     Active Substance: ACETAMINOPHEN
     Dosage: 7.5 G, QD
     Route: 065

REACTIONS (9)
  - Upper gastrointestinal haemorrhage [Unknown]
  - Encephalopathy [Recovering/Resolving]
  - Hepatotoxicity [Unknown]
  - Acidosis [Recovering/Resolving]
  - Coagulopathy [Recovering/Resolving]
  - Hyperammonaemia [Unknown]
  - Toxicity to various agents [Unknown]
  - Condition aggravated [Unknown]
  - Overdose [Unknown]
